FAERS Safety Report 6969645 (Version 1)
Quarter: 2020Q3

REPORT INFORMATION
  Report Type: Spontaneous
  Country: US (occurrence: US)
  Receive Date: 20090415
  Receipt Date: 20090415
  Transmission Date: 20201104
  Serious: Yes (Death, Hospitalization)
  Sender: FDA-Public Use
  Company Number: US-ASTRAZENECA-2009UW09280

PATIENT
  Sex: Male
  Weight: 71 kg

DRUGS (9)
  1. COLACE [Suspect]
     Active Substance: DOCUSATE SODIUM
  2. NEXIUM [Suspect]
     Active Substance: ESOMEPRAZOLE MAGNESIUM
     Route: 048
  3. CELEBREX [Suspect]
     Active Substance: CELECOXIB
  4. MEGACE [Suspect]
     Active Substance: MEGESTROL ACETATE
  5. OXYCODONE [Suspect]
     Active Substance: OXYCODONE
  6. XANAX [Suspect]
     Active Substance: ALPRAZOLAM
  7. SELUMETINIB. [Suspect]
     Active Substance: SELUMETINIB
     Indication: THYROID CANCER
     Route: 048
     Dates: start: 20081229, end: 20090210
  8. SYNTHROID [Suspect]
     Active Substance: LEVOTHYROXINE SODIUM
  9. LEXAPRO [Suspect]
     Active Substance: ESCITALOPRAM OXALATE

REACTIONS (1)
  - Disease progression [Fatal]
